FAERS Safety Report 8134565-3 (Version None)
Quarter: 2012Q1

REPORT INFORMATION
  Report Type: 
  Country: None (occurrence: None)
  Receive Date: 20120214
  Receipt Date: 20120208
  Transmission Date: 20120608
  Serious: No
  Sender: FDA-Public Use
  Company Number: US-PFIZER INC-2012003911

PATIENT
  Sex: Female
  Weight: 63.492 kg

DRUGS (4)
  1. LYRICA [Suspect]
     Indication: LIMB DISCOMFORT
     Dosage: 25 MG, UNK
     Dates: start: 20110101
  2. LYRICA [Suspect]
     Dosage: 50 MG, DAILY
     Dates: start: 20120101
  3. LYRICA [Suspect]
     Dosage: 25 MG, DAILY
     Dates: start: 20120101
  4. LYRICA [Suspect]
     Dosage: 25 MG, EVERY OTHER DAY

REACTIONS (4)
  - RASH [None]
  - INSOMNIA [None]
  - TREMOR [None]
  - DRUG EFFECT DECREASED [None]
